FAERS Safety Report 23083541 (Version 5)
Quarter: 2025Q1

REPORT INFORMATION
  Report Type: Report from Study
  Country: US (occurrence: US)
  Receive Date: 20231019
  Receipt Date: 20250204
  Transmission Date: 20250409
  Serious: Yes (Hospitalization, Disabling, Other)
  Sender: TAKEDA
  Company Number: US-TAKEDA-2023TUS099138

PATIENT
  Age: 79 Year
  Sex: Female

DRUGS (11)
  1. PONATINIB [Suspect]
     Active Substance: PONATINIB
     Indication: Acute lymphocytic leukaemia
     Dosage: 30 MILLIGRAM, QD
     Dates: start: 20231004
  2. PONATINIB [Suspect]
     Active Substance: PONATINIB
  3. PONATINIB [Suspect]
     Active Substance: PONATINIB
     Dosage: 15 MILLIGRAM, QD
  4. LEVOTHYROXINE SODIUM [Concomitant]
     Active Substance: LEVOTHYROXINE SODIUM
  5. SERTRALINE HYDROCHLORIDE [Concomitant]
     Active Substance: SERTRALINE HYDROCHLORIDE
  6. METOPROLOL SUCCINATE [Concomitant]
     Active Substance: METOPROLOL SUCCINATE
  7. TRAZODONE HCL [Concomitant]
     Active Substance: TRAZODONE HYDROCHLORIDE
  8. FAMOTIDINE [Concomitant]
     Active Substance: FAMOTIDINE
  9. ELIQUIS [Concomitant]
     Active Substance: APIXABAN
  10. DAPSONE [Concomitant]
     Active Substance: DAPSONE
  11. ACYCLOVIR [Concomitant]
     Active Substance: ACYCLOVIR

REACTIONS (10)
  - COVID-19 [Unknown]
  - Blast cell crisis [Recovering/Resolving]
  - Gait disturbance [Recovering/Resolving]
  - Dry skin [Not Recovered/Not Resolved]
  - Insomnia [Not Recovered/Not Resolved]
  - Skin exfoliation [Not Recovered/Not Resolved]
  - Skin discolouration [Not Recovered/Not Resolved]
  - Malaise [Unknown]
  - Asthenia [Recovering/Resolving]
  - Off label use [Unknown]

NARRATIVE: CASE EVENT DATE: 20231004
